FAERS Safety Report 8839988 (Version 1)
Quarter: 2012Q4

REPORT INFORMATION
  Report Type: Spontaneous
  Country: US (occurrence: None)
  Receive Date: 20121012
  Receipt Date: 20121012
  Transmission Date: 20130627
  Serious: Yes (Other)
  Sender: FDA-Public Use
  Company Number: None

PATIENT
  Age: 23 Year
  Sex: Female
  Weight: 88.45 kg

DRUGS (2)
  1. GEODON [Suspect]
     Indication: BIPOLAR DISORDER
     Route: 048
     Dates: start: 20090811, end: 20090820
  2. BUSPAR [Suspect]
     Indication: ANXIETY
     Route: 048
     Dates: start: 20090811, end: 20090820

REACTIONS (4)
  - Hypoaesthesia oral [None]
  - Hypoaesthesia oral [None]
  - Dysarthria [None]
  - Hallucination, visual [None]
